FAERS Safety Report 15246027 (Version 1)
Quarter: 2018Q3

REPORT INFORMATION
  Report Type: Report from Study
  Country: ES (occurrence: ES)
  Receive Date: 20180806
  Receipt Date: 20180806
  Transmission Date: 20181010
  Serious: Yes (Hospitalization, Other)
  Sender: FDA-Public Use
  Company Number: ES-SA-2018SA183268

PATIENT
  Age: 69 Year
  Sex: Male

DRUGS (1)
  1. INSULIN GLARGINE [Suspect]
     Active Substance: INSULIN GLARGINE
     Indication: TYPE 2 DIABETES MELLITUS
     Dosage: 22 IU, QD
     Route: 058

REACTIONS (3)
  - Postoperative wound infection [Not Recovered/Not Resolved]
  - Vascular graft [Unknown]
  - Stent placement [Unknown]

NARRATIVE: CASE EVENT DATE: 20180717
